FAERS Safety Report 5565104-9 (Version None)
Quarter: 2007Q4

REPORT INFORMATION
  Report Type: 
  Country: None (occurrence: None)
  Receive Date: 20071218
  Receipt Date: 20071211
  Transmission Date: 20080405
  Serious: Yes (Hospitalization, Other)
  Sender: FDA-Public Use
  Company Number: PHHO2006US01968

PATIENT
  Age: 50 Year
  Sex: Female
  Weight: 76.2 kg

DRUGS (1)
  1. STI 571 VS IFN-ALPHA + CYTARABINE [Suspect]
     Indication: CHRONIC MYELOID LEUKAEMIA
     Dosage: 400 MG, QD
     Route: 048
     Dates: start: 20010807

REACTIONS (3)
  - PAPILLARY THYROID CANCER [None]
  - THYROID OPERATION [None]
  - THYROIDECTOMY [None]
